FAERS Safety Report 4456109-X (Version None)
Quarter: 2004Q3

REPORT INFORMATION
  Report Type: 
  Country: None (occurrence: None)
  Receive Date: 20040920
  Receipt Date: 20040908
  Transmission Date: 20050211
  Serious: Yes (Life-Threatening, Hospitalization, Other)
  Sender: FDA-Public Use
  Company Number: DE-2004-031471

PATIENT
  Age: 73 Year
  Sex: Male
  Weight: 84 kg

DRUGS (7)
  1. ULTRAVIST 300 [Suspect]
     Indication: COMPUTERISED TOMOGRAM
     Dosage: 94 ML, 1 DOSE, INTRAVENOUS
     Route: 042
     Dates: start: 20040908, end: 20040908
  2. ISOPTIN [Concomitant]
  3. UNAT (TORASEMIDE) [Concomitant]
  4. ACETYLSALICYLIC ACID SRT [Concomitant]
  5. DIGOXIN [Concomitant]
  6. ISOKET [Concomitant]
  7. XANEF (ENALAPRIL MALEATE) [Concomitant]

REACTIONS (1)
  - ANAPHYLACTIC SHOCK [None]
